FAERS Safety Report 5716536-7 (Version None)
Quarter: 2008Q2

REPORT INFORMATION
  Report Type: 
  Country: None (occurrence: None)
  Receive Date: 20080424
  Receipt Date: 20080416
  Transmission Date: 20081010
  Serious: Yes (Death, Other)
  Sender: FDA-Public Use
  Company Number: FR-ELI_LILLY_AND_COMPANY-FR200804004178

PATIENT
  Age: 7 Year
  Sex: Male

DRUGS (1)
  1. HUMATROPE [Suspect]
     Indication: GROWTH RETARDATION
     Dosage: 0.36 MG/KG, UNK

REACTIONS (8)
  - CACHEXIA [None]
  - DIABETES MELLITUS [None]
  - ENCEPHALOPATHY [None]
  - NEPHROTIC SYNDROME [None]
  - NEUROLOGICAL SYMPTOM [None]
  - NO THERAPEUTIC RESPONSE [None]
  - RENAL FAILURE [None]
  - RETINOGRAM ABNORMAL [None]
